FAERS Safety Report 7087400-9 (Version None)
Quarter: 2010Q4

REPORT INFORMATION
  Report Type: 
  Country: None (occurrence: None)
  Receive Date: 20101108
  Receipt Date: 20101103
  Transmission Date: 20110411
  Serious: No
  Sender: FDA-Public Use
  Company Number: US-BIOGENIDEC-2010BI016727

PATIENT
  Age: 59 Year
  Sex: Female

DRUGS (4)
  1. TYSABRI [Suspect]
     Indication: MULTIPLE SCLEROSIS
     Route: 042
     Dates: start: 20070226, end: 20100204
  2. TYSABRI [Suspect]
     Route: 042
     Dates: start: 20100816
  3. AVONEX [Concomitant]
     Indication: MULTIPLE SCLEROSIS
     Route: 030
  4. REBIF [Concomitant]
     Indication: MULTIPLE SCLEROSIS

REACTIONS (4)
  - GAIT DISTURBANCE [None]
  - MOBILITY DECREASED [None]
  - PAIN [None]
  - PAIN IN EXTREMITY [None]
